FAERS Safety Report 23447774 (Version 5)
Quarter: 2024Q2

REPORT INFORMATION
  Report Type: Spontaneous
  Country: MX (occurrence: None)
  Receive Date: 20240126
  Receipt Date: 20240408
  Transmission Date: 20240716
  Serious: Yes (Life-Threatening, Other)
  Sender: FDA-Public Use
  Company Number: 2024A019696

PATIENT
  Age: 686 Month
  Sex: Male
  Weight: 100 kg

DRUGS (5)
  1. BUDESONIDE\FORMOTEROL\GLYCOPYRRONIUM [Suspect]
     Active Substance: BUDESONIDE\FORMOTEROL\GLYCOPYRRONIUM
     Indication: Asthma
     Route: 055
     Dates: start: 20231107, end: 20231107
  2. SYMBICORT [Suspect]
     Active Substance: BUDESONIDE\FORMOTEROL FUMARATE DIHYDRATE
     Indication: Asthma
     Dosage: DF BID, TWO TIMES A DAY
     Route: 055
     Dates: start: 202103, end: 20231106
  3. MONTELUKAST [Concomitant]
     Active Substance: MONTELUKAST SODIUM
  4. LEVOCETIRICIN [Concomitant]
  5. SPIRIVA [Concomitant]
     Active Substance: TIOTROPIUM BROMIDE MONOHYDRATE

REACTIONS (7)
  - Asthmatic crisis [Recovered/Resolved]
  - Asthma [Recovered/Resolved]
  - Device failure [Unknown]
  - Drug dose omission by device [Unknown]
  - Viral infection [Recovered/Resolved]
  - Malaise [Recovered/Resolved]
  - Therapeutic response unexpected [Unknown]

NARRATIVE: CASE EVENT DATE: 20231201
